FAERS Safety Report 21283552 (Version 1)
Quarter: 2022Q3

REPORT INFORMATION
  Report Type: Spontaneous
  Country: US (occurrence: None)
  Receive Date: 20220901
  Receipt Date: 20220901
  Transmission Date: 20221027
  Serious: Yes (Hospitalization)
  Sender: FDA-Public Use
  Company Number: None

PATIENT
  Sex: Male
  Weight: 32.7 kg

DRUGS (1)
  1. CYCLOPHOSPHAMIDE [Suspect]
     Active Substance: CYCLOPHOSPHAMIDE
     Dates: end: 20220520

REACTIONS (6)
  - Abdominal pain [None]
  - Hypertension [None]
  - Mental status changes [None]
  - Bradycardia [None]
  - Clostridium test positive [None]
  - Diarrhoea [None]

NARRATIVE: CASE EVENT DATE: 20220821
